FAERS Safety Report 16095175 (Version 2)
Quarter: 2020Q4

REPORT INFORMATION
  Report Type: Report from Study
  Country: GR (occurrence: GR)
  Receive Date: 20190320
  Receipt Date: 20201130
  Transmission Date: 20210113
  Serious: Yes (Death, Life-Threatening, Disabling, Other)
  Sender: FDA-Public Use
  Company Number: GR-AMGEN-GRCCT2019043211

PATIENT
  Age: 74 Year
  Sex: Female
  Weight: 48 kg

DRUGS (4)
  1. CARFILZOMIB [Suspect]
     Active Substance: CARFILZOMIB
     Indication: PLASMA CELL MYELOMA
     Dosage: 20 MILLIGRAM/SQ. METER ON DAYS 1, 2 (30 MG/ML)
     Route: 042
     Dates: start: 20180620
  2. CARFILZOMIB [Suspect]
     Active Substance: CARFILZOMIB
     Dosage: 45 MILLIGRAM/SQ. METER ON DAYS 8, 9
     Route: 042
     Dates: start: 20180705, end: 20180706
  3. CIPROFLOXACIN. [Concomitant]
     Active Substance: CIPROFLOXACIN
     Indication: PYELONEPHRITIS
     Dosage: 1000 MILLIGRAM, (500 MG X 2 EVERY DAY)
     Route: 048
     Dates: start: 20180623, end: 20180705
  4. DEXAMETHASONE. [Concomitant]
     Active Substance: DEXAMETHASONE
     Indication: PLASMA CELL MYELOMA
     Dosage: 20 MILLIGRAM ON DAYS 1, 2 OF EVERY WEEK
     Route: 042
     Dates: start: 20180623, end: 20180706

REACTIONS (3)
  - Thrombocytopenia [Recovered/Resolved]
  - Cardiac failure [Fatal]
  - Pyelonephritis [Recovered/Resolved]

NARRATIVE: CASE EVENT DATE: 20180624
